FAERS Safety Report 6158089-8 (Version None)
Quarter: 2009Q2

REPORT INFORMATION
  Report Type: 
  Country: None (occurrence: None)
  Receive Date: 20090417
  Receipt Date: 20090408
  Transmission Date: 20091009
  Serious: Yes (Hospitalization, Other)
  Sender: FDA-Public Use
  Company Number: PHHY2009JP12934

PATIENT
  Age: 60 Year
  Sex: Male

DRUGS (6)
  1. TEGRETOL [Suspect]
     Indication: CONVULSION
     Dosage: 100 MG/DAY
     Route: 048
     Dates: start: 20090218, end: 20090319
  2. DEPAKENE [Concomitant]
     Dosage: 800 MG
     Route: 048
  3. BASSAMIN [Concomitant]
     Dosage: 81 MG
     Route: 048
  4. RENIVEZE [Concomitant]
     Dosage: 5 MG
     Route: 048
  5. WARFARIN SODIUM [Concomitant]
     Dosage: 4 MG
     Route: 048
  6. VASOLAN [Concomitant]
     Dosage: 120 MG
     Route: 048

REACTIONS (9)
  - ALANINE AMINOTRANSFERASE INCREASED [None]
  - ASPARTATE AMINOTRANSFERASE INCREASED [None]
  - DRUG ERUPTION [None]
  - EAR PAIN [None]
  - ERYTHEMA [None]
  - HEADACHE [None]
  - HEPATIC FUNCTION ABNORMAL [None]
  - MYCOPLASMA INFECTION [None]
  - PYREXIA [None]
